FAERS Safety Report 5142624-2 (Version None)
Quarter: 2006Q4

REPORT INFORMATION
  Report Type: 
  Country: None (occurrence: None)
  Receive Date: 20061027
  Receipt Date: 20061013
  Transmission Date: 20070319
  Serious: Yes (Hospitalization, Other)
  Sender: FDA-Public Use
  Company Number: US200608005378

PATIENT
  Age: 47 Year
  Sex: Female
  Weight: 77.1 kg

DRUGS (4)
  1. ZYPREXA [Suspect]
     Dates: start: 19980101, end: 20010101
  2. SEROQUEL /UNK/(QUETIAPINE FUMARATE) [Concomitant]
  3. RISPERDAL/SWE/(RISPERIDONE) [Concomitant]
  4. CLEXA (CITALOPRAM HYDROBROMIDE) [Concomitant]

REACTIONS (6)
  - DIABETES MELLITUS [None]
  - HYPERGLYCAEMIA [None]
  - HYPOGLYCAEMIA [None]
  - METABOLIC DISORDER [None]
  - RENAL NECROSIS [None]
  - VISION BLURRED [None]
